FAERS Safety Report 5353033-5 (Version None)
Quarter: 2007Q2

REPORT INFORMATION
  Report Type: 
  Country: None (occurrence: None)
  Receive Date: 20070611
  Receipt Date: 20070530
  Transmission Date: 20071010
  Serious: Yes (Hospitalization)
  Sender: FDA-Public Use
  Company Number: DE-PFIZER INC-2007043548

PATIENT
  Sex: Female
  Weight: 58.7 kg

DRUGS (1)
  1. SU-011,248 [Suspect]
     Indication: METASTATIC GASTRIC CANCER
     Dosage: DAILY DOSE:50MG
     Route: 048

REACTIONS (3)
  - CHILLS [None]
  - PYREXIA [None]
  - URETERITIS [None]
